FAERS Safety Report 4716755-2 (Version None)
Quarter: 2005Q3

REPORT INFORMATION
  Report Type: 
  Country: None (occurrence: None)
  Receive Date: 20050719
  Receipt Date: 20050714
  Transmission Date: 20060218
  Serious: Yes (Death)
  Sender: FDA-Public Use
  Company Number: PHFR2005GB02469

PATIENT

DRUGS (1)
  1. ZOMETA [Suspect]

REACTIONS (1)
  - BRADYCARDIA [None]
